FAERS Safety Report 10408659 (Version 1)
Quarter: 2014Q3

REPORT INFORMATION
  Report Type: Spontaneous
  Country: GB (occurrence: None)
  Receive Date: 20140821
  Receipt Date: 20140821
  Transmission Date: 20150326
  Serious: Yes (Other)
  Sender: FDA-Public Use
  Company Number: AUR-APL-2014-08779

PATIENT
  Age: 50 Year
  Sex: Male
  Weight: 88.9 kg

DRUGS (5)
  1. IMPRAMINE [Concomitant]
  2. OMEPRAZOLE. [Concomitant]
     Active Substance: OMEPRAZOLE
  3. RAMIPRIL. [Concomitant]
     Active Substance: RAMIPRIL
  4. SIMVASTATIN (SIMVASTATIN) UNKNOWN, UNKNOWN [Suspect]
     Active Substance: SIMVASTATIN
     Indication: HYPERCHOLESTEROLAEMIA
     Route: 048
     Dates: start: 20120930, end: 20121031
  5. BENDROFLUMETHIAZIDE [Concomitant]
     Active Substance: BENDROFLUMETHIAZIDE

REACTIONS (3)
  - Neuropathy peripheral [None]
  - Hypoaesthesia [None]
  - Vertigo [None]
